FAERS Safety Report 7112743-X (Version None)
Quarter: 2010Q4

REPORT INFORMATION
  Report Type: 
  Country: None (occurrence: None)
  Receive Date: 20101119
  Receipt Date: 20101111
  Transmission Date: 20110411
  Serious: Yes (Hospitalization)
  Sender: FDA-Public Use
  Company Number: GB-BRISTOL-MYERS SQUIBB COMPANY-15334428

PATIENT
  Age: 68 Year
  Sex: Female

DRUGS (10)
  1. ERBITUX [Suspect]
     Indication: HEAD AND NECK CANCER
     Dates: start: 20100820, end: 20100924
  2. CO-CODAMOL [Concomitant]
  3. MORPHINE [Concomitant]
  4. CITALOPRAM HYDROBROMIDE [Concomitant]
  5. SIMVASTATIN [Concomitant]
  6. LANSOPRAZOLE [Concomitant]
  7. ASPIRIN [Concomitant]
  8. MINOCYCLINE HCL [Concomitant]
  9. CALCICHEW [Concomitant]
  10. ALENDRONATE SODIUM [Concomitant]

REACTIONS (5)
  - DIZZINESS [None]
  - FALL [None]
  - HAEMORRHAGE INTRACRANIAL [None]
  - PULMONARY EMBOLISM [None]
  - SUBDURAL HAEMATOMA [None]
